FAERS Safety Report 16762521 (Version 1)
Quarter: 2019Q3

REPORT INFORMATION
  Report Type: Report from Study
  Country: CN (occurrence: CN)
  Receive Date: 20190831
  Receipt Date: 20190831
  Transmission Date: 20191005
  Serious: Yes (Other)
  Sender: FDA-Public Use
  Company Number: CN-ROCHE-2390284

PATIENT

DRUGS (2)
  1. BEVACIZUMAB. [Suspect]
     Active Substance: BEVACIZUMAB
     Indication: MALIGNANT GLIOMA
     Route: 041
  2. TEMOZOLOMIDE. [Suspect]
     Active Substance: TEMOZOLOMIDE
     Indication: MALIGNANT GLIOMA
     Route: 048

REACTIONS (12)
  - White blood cell count decreased [Unknown]
  - Nausea [Unknown]
  - Epistaxis [Recovering/Resolving]
  - Off label use [Unknown]
  - Platelet count decreased [Unknown]
  - Vomiting [Unknown]
  - Pyrexia [Unknown]
  - Asthenia [Unknown]
  - Intentional product use issue [Unknown]
  - Hypertension [Recovering/Resolving]
  - Anaemia [Unknown]
  - Infection [Unknown]
